FAERS Safety Report 4304947-6 (Version None)
Quarter: 2004Q1

REPORT INFORMATION
  Report Type: 
  Country: None (occurrence: None)
  Receive Date: 20040226
  Receipt Date: 20040120
  Transmission Date: 20041129
  Serious: No
  Sender: FDA-Public Use
  Company Number: US-GLAXOSMITHKLINE-A0494238A

PATIENT
  Age: 71 Year
  Sex: Female

DRUGS (7)
  1. WELLBUTRIN [Suspect]
     Indication: DEPRESSION
     Dosage: 150MG PER DAY
     Route: 048
     Dates: start: 20040106
  2. WELLBUTRIN [Suspect]
     Route: 048
     Dates: start: 20030601, end: 20030101
  3. XANAX [Concomitant]
  4. VIOXX [Concomitant]
  5. AMBIEN [Concomitant]
  6. VITAMIN C [Concomitant]
  7. VITAMINE B12 [Concomitant]

REACTIONS (4)
  - AMNESIA [None]
  - DISTURBANCE IN ATTENTION [None]
  - FEELING ABNORMAL [None]
  - FEELING DRUNK [None]
